FAERS Safety Report 15680598 (Version 3)
Quarter: 2019Q1

REPORT INFORMATION
  Report Type: Spontaneous
  Country: PT (occurrence: PT)
  Receive Date: 20181203
  Receipt Date: 20190327
  Transmission Date: 20190417
  Serious: Yes (Death, Hospitalization, Other)
  Sender: FDA-Public Use
  Company Number: PHHY2018PT172419

PATIENT
  Age: 96 Year
  Sex: Female

DRUGS (2)
  1. ALLOPURINOL. [Suspect]
     Active Substance: ALLOPURINOL
     Indication: HYPERURICAEMIA
  2. ALLOPURINOL. [Suspect]
     Active Substance: ALLOPURINOL
     Indication: GOUT
     Dosage: UNK
     Route: 048

REACTIONS (11)
  - Condition aggravated [Unknown]
  - Melaena [Unknown]
  - Face oedema [Unknown]
  - Hepatic enzyme abnormal [Fatal]
  - Hypotension [Fatal]
  - Gastric ulcer haemorrhage [Fatal]
  - Mucosal ulceration [Unknown]
  - Renal impairment [Unknown]
  - Drug reaction with eosinophilia and systemic symptoms [Fatal]
  - Rash maculo-papular [Unknown]
  - Angular cheilitis [Unknown]
